FAERS Safety Report 5120353-9 (Version None)
Quarter: 2006Q4

REPORT INFORMATION
  Report Type: 
  Country: None (occurrence: None)
  Receive Date: 20061002
  Receipt Date: 20061002
  Transmission Date: 20070319
  Serious: Yes (Life-Threatening, Hospitalization, Disabling)
  Sender: FDA-Public Use
  Company Number: None

PATIENT
  Age: 14 Year
  Sex: Female
  Weight: 52.1637 kg

DRUGS (1)
  1. PAXIL [Suspect]
     Indication: MAJOR DEPRESSION
     Dosage: 20 MG ONCE DAILY PO
     Route: 048
     Dates: start: 20000505, end: 20000921

REACTIONS (2)
  - INCORRECT DOSE ADMINISTERED [None]
  - SUICIDE ATTEMPT [None]
